FAERS Safety Report 18222003 (Version 4)
Quarter: 2020Q4

REPORT INFORMATION
  Report Type: Report from Study
  Country: AR (occurrence: AR)
  Receive Date: 20200902
  Receipt Date: 20201231
  Transmission Date: 20210113
  Serious: Yes (Hospitalization)
  Sender: FDA-Public Use
  Company Number: NVSC2020AR240132

PATIENT
  Age: 47 Year
  Sex: Female

DRUGS (2)
  1. KISQALI [Suspect]
     Active Substance: RIBOCICLIB
     Dosage: 600 MG, QD (START DATE AND STOP DATE: MID NOV)
     Route: 048
     Dates: start: 202011, end: 202011
  2. KISQALI [Suspect]
     Active Substance: RIBOCICLIB
     Indication: BREAST CANCER METASTATIC
     Dosage: 600 MG, QD
     Route: 048
     Dates: start: 20190911, end: 20200815

REACTIONS (7)
  - Vomiting [Unknown]
  - Cystitis [Unknown]
  - Ascites [Unknown]
  - Dehydration [Unknown]
  - Blister [Unknown]
  - Cholelithiasis [Unknown]
  - Anaemia [Unknown]

NARRATIVE: CASE EVENT DATE: 202009
